FAERS Safety Report 8532933-9 (Version None)
Quarter: 2012Q3

REPORT INFORMATION
  Report Type: 
  Country: None (occurrence: None)
  Receive Date: 20120712
  Receipt Date: 20120702
  Transmission Date: 20120928
  Serious: Yes (Death)
  Sender: FDA-Public Use
  Company Number: DKLU1082776

PATIENT
  Age: 4 Year
  Sex: Male

DRUGS (1)
  1. SABRIL [Suspect]
     Indication: EPILEPSY
     Dosage: 500 MG MILLIGRAM(S), 2 IN 1 D, ORAL
     Route: 048
     Dates: start: 20091202

REACTIONS (1)
  - CHRONIC RESPIRATORY FAILURE [None]
